FAERS Safety Report 20081398 (Version 2)
Quarter: 2021Q4

REPORT INFORMATION
  Report Type: Spontaneous
  Country: US (occurrence: None)
  Receive Date: 20211117
  Receipt Date: 20211231
  Transmission Date: 20220303
  Serious: No
  Sender: FDA-Public Use
  Company Number: 2021A799481

PATIENT
  Sex: Female
  Weight: 104.3 kg

DRUGS (1)
  1. FASENRA [Suspect]
     Active Substance: BENRALIZUMAB
     Indication: Asthma
     Route: 058
     Dates: start: 20211103

REACTIONS (5)
  - Cough [Unknown]
  - Abdominal pain upper [Unknown]
  - Wheezing [Unknown]
  - Chest discomfort [Unknown]
  - Asthma [Unknown]
